FAERS Safety Report 7545914-9 (Version None)
Quarter: 2011Q2

REPORT INFORMATION
  Report Type: 
  Country: None (occurrence: None)
  Receive Date: 20110613
  Receipt Date: 20110613
  Transmission Date: 20111010
  Serious: Yes (Other)
  Sender: FDA-Public Use
  Company Number: None

PATIENT

DRUGS (1)
  1. HUMALOG PEN [Suspect]

REACTIONS (3)
  - PRODUCT COLOUR ISSUE [None]
  - PRODUCT PHYSICAL ISSUE [None]
  - OVERDOSE [None]
